FAERS Safety Report 7983131-9 (Version None)
Quarter: 2011Q4

REPORT INFORMATION
  Report Type: 
  Country: None (occurrence: None)
  Receive Date: 20111215
  Receipt Date: 20111107
  Transmission Date: 20120403
  Serious: Yes (Other)
  Sender: FDA-Public Use
  Company Number: MA-ELI_LILLY_AND_COMPANY-MA201112003720

PATIENT
  Age: 46 Year
  Sex: Female

DRUGS (2)
  1. CYMBALTA [Suspect]
     Dosage: 20 MG, QD
  2. CYMBALTA [Suspect]
     Indication: FIBROMYALGIA
     Dosage: 60 MG, QD
     Dates: start: 20110101

REACTIONS (1)
  - PAPILLOEDEMA [None]
